FAERS Safety Report 4882897-4 (Version None)
Quarter: 2006Q1

REPORT INFORMATION
  Report Type: 
  Country: None (occurrence: None)
  Receive Date: 20060118
  Receipt Date: 20060110
  Transmission Date: 20060701
  Serious: Yes (Other)
  Sender: FDA-Public Use
  Company Number: JP-JNJFOC-20050700456

PATIENT
  Sex: Female
  Weight: 43 kg

DRUGS (22)
  1. REMICADE [Suspect]
     Route: 042
  2. REMICADE [Suspect]
     Route: 042
  3. REMICADE [Suspect]
     Route: 042
  4. REMICADE [Suspect]
     Indication: RHEUMATOID ARTHRITIS
     Route: 042
  5. RHEUMATREX [Concomitant]
     Indication: RHEUMATOID ARTHRITIS
     Route: 048
  6. PREDONINE [Concomitant]
     Indication: RHEUMATOID ARTHRITIS
     Route: 048
  7. TEGRETOL [Concomitant]
     Route: 048
  8. TEGRETOL [Concomitant]
     Route: 048
  9. MAGNESIUM OXIDE [Concomitant]
     Route: 048
  10. VOLTAREN [Concomitant]
     Indication: RHEUMATOID ARTHRITIS
     Route: 048
  11. LENDORMIN [Concomitant]
     Route: 048
  12. SELBEX [Concomitant]
     Route: 048
  13. DEPAS [Concomitant]
     Route: 048
  14. DEPAS [Concomitant]
     Route: 048
  15. VITAMEDIN [Concomitant]
     Route: 048
  16. VITAMEDIN [Concomitant]
     Route: 048
  17. VITAMEDIN [Concomitant]
     Route: 048
  18. LOXONIN [Concomitant]
     Indication: RHEUMATOID ARTHRITIS
     Route: 048
  19. ISCOTIN [Concomitant]
     Indication: ANTIBIOTIC PROPHYLAXIS
     Route: 048
  20. ADRENAL HORMONE PREPARATIONS [Concomitant]
     Indication: RHEUMATOID ARTHRITIS
  21. MUCOSTA [Concomitant]
     Route: 048
  22. GASTER D [Concomitant]
     Route: 048

REACTIONS (3)
  - BREAST CANCER [None]
  - BREAST CANCER FEMALE [None]
  - DRUG INTERACTION [None]
